FAERS Safety Report 7904621-0 (Version None)
Quarter: 2011Q4

REPORT INFORMATION
  Report Type: 
  Country: None (occurrence: None)
  Receive Date: 20111109
  Receipt Date: 20110708
  Transmission Date: 20120403
  Serious: Yes (Hospitalization)
  Sender: FDA-Public Use
  Company Number: US-GLAXOSMITHKLINE-A0936071A

PATIENT
  Age: 24 Year
  Sex: Female
  Weight: 78.2 kg

DRUGS (11)
  1. ZOFRAN [Concomitant]
  2. COLACE [Concomitant]
  3. IBUPROFEN (ADVIL) [Concomitant]
  4. LAMOTRIGINE [Suspect]
     Indication: CONVULSION
     Dosage: 900MG UNKNOWN
     Route: 048
  5. FOLVITE [Concomitant]
  6. VITAMIN AND MINERAL PRENATAL SUPPLEMENT W/ FOLIC ACID CAP [Concomitant]
  7. PERCOCET [Concomitant]
  8. LAMICTAL XR [Suspect]
     Indication: CONVULSION
     Route: 048
     Dates: start: 20080101
  9. IBUPROFEN [Concomitant]
  10. KEPPRA [Suspect]
     Indication: PRODUCT USED FOR UNKNOWN INDICATION
     Dates: start: 20080101
  11. PLAQUENIL [Concomitant]

REACTIONS (5)
  - MATERNAL EXPOSURE DURING PREGNANCY [None]
  - TREMOR [None]
  - STARING [None]
  - CONVULSION [None]
  - OVERDOSE [None]
